FAERS Safety Report 10766412 (Version 2)
Quarter: 2015Q1

REPORT INFORMATION
  Report Type: Report from Study
  Country: DE (occurrence: DE)
  Receive Date: 20150205
  Receipt Date: 20150205
  Transmission Date: 20150721
  Serious: Yes (Hospitalization)
  Sender: FDA-Public Use
  Company Number: PHHO2015DE001378

PATIENT
  Age: 53 Year
  Sex: Male
  Weight: 97 kg

DRUGS (32)
  1. CERTICAN [Suspect]
     Active Substance: EVEROLIMUS
     Dosage: 2 MG, (2 MG IN THE MORNING AND 2 MG IN THE EVENING) BID
     Route: 065
     Dates: start: 20141210, end: 20150121
  2. TACROLIMUS. [Suspect]
     Active Substance: TACROLIMUS
     Dosage: 3 MG, (3 MG IN THE MORNING AND 3 MG IN THE EVENING) BID
     Route: 065
     Dates: start: 20141024, end: 20141103
  3. PANTOZOL [Concomitant]
     Active Substance: PANTOPRAZOLE SODIUM
     Indication: PROPHYLAXIS
     Dosage: UNK
     Route: 065
     Dates: start: 20101213
  4. CERTICAN [Suspect]
     Active Substance: EVEROLIMUS
     Dosage: 2 MG, (2 MG IN THE MORNING AND 2 MG IN THE EVENING) BID
     Route: 065
     Dates: start: 20141124, end: 20141124
  5. CERTICAN [Suspect]
     Active Substance: EVEROLIMUS
     Dosage: DOSE WAS REDUCED TO REAL TARGET LEVEL ONLY
     Route: 065
     Dates: start: 20150126
  6. TACROLIMUS. [Suspect]
     Active Substance: TACROLIMUS
     Indication: LIVER TRANSPLANT
     Dosage: 10 MG, (10 MG IN THE MORNING AND 10 MG IN THE EVENING) BID
     Route: 065
     Dates: start: 20141010, end: 20141010
  7. TACROLIMUS. [Suspect]
     Active Substance: TACROLIMUS
     Dosage: 1 MG, (1 MG IN THE MORNING AND 1 MG IN THE EVENING) BID
     Route: 065
     Dates: start: 20141210
  8. COTRIM D.S. [Concomitant]
     Active Substance: SULFAMETHOXAZOLE\TRIMETHOPRIM
     Indication: PROPHYLAXIS
     Dosage: UNK
     Route: 065
     Dates: start: 20141003
  9. CERTICAN [Suspect]
     Active Substance: EVEROLIMUS
     Dosage: (1 IN THE MORNING AND 3 IN THE MORNING)
     Route: 065
     Dates: start: 20141013, end: 20141013
  10. CERTICAN [Suspect]
     Active Substance: EVEROLIMUS
     Dosage: (3 MG IN THE MORNING AND 3 MG IN THE EVENING)
     Dates: start: 20141014, end: 20141014
  11. CERTICAN [Suspect]
     Active Substance: EVEROLIMUS
     Dosage: 2.5 MG, (2.5 MG IN THE MORNING AND 2.5 MG IN THE EVENING) BID
     Route: 065
     Dates: start: 20141120, end: 20141123
  12. PREDNISOLONE. [Suspect]
     Active Substance: PREDNISOLONE
     Dosage: 7.5 MG, (IN THE MORNING)
     Route: 065
     Dates: start: 20141021, end: 20141028
  13. PREDNISOLONE. [Suspect]
     Active Substance: PREDNISOLONE
     Dosage: 5 MG, (IN THE MORNING)
     Route: 065
     Dates: start: 20141109, end: 20150107
  14. PREDNISOLONE. [Suspect]
     Active Substance: PREDNISOLONE
     Dosage: 2.5 MG, (IN THE MORNING)
     Route: 065
     Dates: start: 20150108
  15. TACROLIMUS. [Suspect]
     Active Substance: TACROLIMUS
     Dosage: 10 MG IN THE MORNING AND 5 MG IN THE EVENING
     Route: 065
     Dates: start: 20141013, end: 20141013
  16. TACROLIMUS. [Suspect]
     Active Substance: TACROLIMUS
     Dosage: 1.5 MG, (1.5 MG IN THE MORNING AND 1.5 MG IN THE EVENING) BID
     Route: 065
     Dates: start: 20141122, end: 20141208
  17. NUTRITION SUPPLEMENTS [Suspect]
     Active Substance: DIETARY SUPPLEMENT
     Indication: NUTRITIONAL SUPPLEMENTATION
     Route: 065
  18. CERTICAN [Suspect]
     Active Substance: EVEROLIMUS
     Dosage: (2.5 MG IN THE MORNING AND 2 MG IN THE EVENING)
     Route: 065
     Dates: start: 20141125, end: 20141209
  19. PREDNISOLONE. [Suspect]
     Active Substance: PREDNISOLONE
     Indication: LIVER TRANSPLANT
     Dosage: 40 MG (IN THE MORNING)
     Route: 065
     Dates: start: 20141006, end: 20141010
  20. PREDNISOLONE. [Suspect]
     Active Substance: PREDNISOLONE
     Dosage: 20 MG, (IN THE MORNING)
     Route: 065
     Dates: start: 20141015, end: 20141020
  21. TACROLIMUS. [Suspect]
     Active Substance: TACROLIMUS
     Dosage: 2 MG IN THE MORNING AND 1.5 MG IN THE EVENING
     Route: 065
     Dates: start: 20141108, end: 20141121
  22. CERTICAN [Suspect]
     Active Substance: EVEROLIMUS
     Indication: LIVER TRANSPLANT
     Dosage: 1 DF (1 IN THE MORNING AND 1 IN THE EVENING)
     Route: 065
     Dates: start: 20141010, end: 20141012
  23. PREDNISOLONE. [Suspect]
     Active Substance: PREDNISOLONE
     Dosage: 30 MG (IN THE MORNING)
     Route: 065
     Dates: start: 20141011, end: 20141014
  24. CERTICAN [Suspect]
     Active Substance: EVEROLIMUS
     Dosage: (3 MG IN THE MORNING AND 2.5 MG IN THE EVENING)
     Route: 065
     Dates: start: 20141119, end: 20141119
  25. TACROLIMUS. [Suspect]
     Active Substance: TACROLIMUS
     Dosage: 3MG IN THE MORNING AND 2 MG IN THE EVENING
     Route: 065
     Dates: start: 20141104, end: 20141104
  26. TACROLIMUS. [Suspect]
     Active Substance: TACROLIMUS
     Dosage: 2 MG, (2 MG IN THE MORNING AND 2 MG IN THE EVENING) BID
     Route: 065
     Dates: start: 20141105, end: 20141107
  27. TACROLIMUS. [Suspect]
     Active Substance: TACROLIMUS
     Dosage: 1.5 MG IN THE MORNING AND 1 MG IN THE EVENING
     Route: 065
     Dates: start: 20141209, end: 20141209
  28. VIREAD [Concomitant]
     Active Substance: TENOFOVIR DISOPROXIL FUMARATE
     Indication: HEPATITIS B
     Dosage: UNK
     Route: 065
     Dates: start: 201201
  29. URSOFALK [Concomitant]
     Active Substance: URSODIOL
     Indication: CHOLESTASIS
     Dosage: UNK
     Route: 065
     Dates: start: 20150108
  30. TACROLIMUS. [Suspect]
     Active Substance: TACROLIMUS
     Dosage: 5 MG, (5 MG IN THE MORNING AND 5 MG IN THE EVENING) BID
     Route: 065
     Dates: start: 20141014, end: 20141022
  31. TACROLIMUS. [Suspect]
     Active Substance: TACROLIMUS
     Dosage: 5 MG IN THE MORNING AND 3 MG IN THE EVENING
     Route: 065
     Dates: start: 20141023, end: 20141023
  32. HEPATECT [Concomitant]
     Indication: HEPATITIS B
     Dosage: UNK
     Route: 065

REACTIONS (1)
  - Hepatic steatosis [Recovered/Resolved]

NARRATIVE: CASE EVENT DATE: 20150122
